FAERS Safety Report 13131705 (Version 2)
Quarter: 2017Q2

REPORT INFORMATION
  Report Type: Report from Study
  Country: CN (occurrence: CN)
  Receive Date: 20170119
  Receipt Date: 20170516
  Transmission Date: 20170830
  Serious: Yes (Other)
  Sender: FDA-Public Use
  Company Number: PHHY2017CN005195

PATIENT
  Age: 42 Year
  Sex: Male

DRUGS (116)
  1. MYFORTIC [Suspect]
     Active Substance: MYCOPHENOLATE SODIUM
     Indication: RENAL TRANSPLANT
     Dosage: 1440 MG, QD
     Route: 065
     Dates: start: 20160810, end: 20160811
  2. BASILIXIMAB [Suspect]
     Active Substance: BASILIXIMAB
     Indication: PRODUCT USED FOR UNKNOWN INDICATION
     Dosage: 20 MG, QD
     Route: 065
     Dates: start: 20160810, end: 20160810
  3. PREDNISONE. [Suspect]
     Active Substance: PREDNISONE
     Indication: PRODUCT USED FOR UNKNOWN INDICATION
     Dosage: 50 MG, QD
     Route: 065
     Dates: start: 20160813, end: 20160813
  4. CALCIUM GLUCONATE. [Concomitant]
     Active Substance: CALCIUM GLUCONATE
     Dosage: 30 ML, QD
     Route: 042
     Dates: start: 20160811, end: 20160811
  5. ALBUMIN [Concomitant]
     Active Substance: ALBUMIN HUMAN
     Dosage: 100 ML, QD
     Route: 042
     Dates: start: 20160810, end: 20160810
  6. ALANYL GLUTAMINE [Concomitant]
     Active Substance: ALANYL GLUTAMINE
     Indication: PRODUCT USED FOR UNKNOWN INDICATION
     Dosage: 20000 MG, QD
     Route: 042
     Dates: start: 20160811, end: 20160816
  7. LIDOCAINE. [Concomitant]
     Active Substance: LIDOCAINE
     Dosage: 10 ML, QD
     Route: 042
     Dates: start: 20160813, end: 20160813
  8. MAGNESIUM ISOGLYCYRRHIZINATE [Concomitant]
     Active Substance: MAGNESIUM ISOGLYCYRRHIZINATE
     Indication: PROPHYLAXIS
     Dosage: 150 MG, QD
     Route: 042
     Dates: start: 20160810, end: 20160816
  9. PHENTOLAMINE MESYLATE. [Concomitant]
     Active Substance: PHENTOLAMINE MESYLATE
     Indication: POLYURIA
     Dosage: 5 MG, QD
     Route: 042
     Dates: start: 20160810, end: 20160810
  10. PHENTOLAMINE MESYLATE. [Concomitant]
     Active Substance: PHENTOLAMINE MESYLATE
     Dosage: 5 MG, QD
     Route: 042
     Dates: start: 20160812, end: 20160812
  11. PHENTOLAMINE MESYLATE. [Concomitant]
     Active Substance: PHENTOLAMINE MESYLATE
     Dosage: 5 MG, QD
     Route: 042
     Dates: start: 20160813, end: 20160813
  12. RECOMBINANT HUMAN ERYTHROPOIETIN [Concomitant]
     Active Substance: ERYTHROPOIETIN
     Dosage: 1 WU QD
     Route: 042
     Dates: start: 20160816, end: 20160816
  13. SMECTITE [Concomitant]
     Active Substance: MONTMORILLONITE
     Indication: DIARRHOEA
     Dosage: 30000 MG, QD
     Route: 048
     Dates: start: 20160813, end: 20160813
  14. ETAMSYLATE [Concomitant]
     Active Substance: ETHAMSYLATE
     Indication: HAEMOSTASIS
     Dosage: 2000 MG, QD
     Route: 042
     Dates: start: 20160810, end: 20160810
  15. TACROLIMUS. [Suspect]
     Active Substance: TACROLIMUS
     Dosage: 7 MG, QD
     Route: 065
     Dates: start: 20160823, end: 20160825
  16. TACROLIMUS. [Suspect]
     Active Substance: TACROLIMUS
     Dosage: 6 MG, QD
     Route: 065
     Dates: start: 20160826, end: 20160829
  17. CALCIUM GLUCONATE. [Concomitant]
     Active Substance: CALCIUM GLUCONATE
     Dosage: 30 ML, QD
     Route: 042
     Dates: start: 20160812, end: 20160812
  18. COENZYME [Concomitant]
     Active Substance: UBIDECARENONE
     Dosage: 15 MG, QD
     Route: 042
     Dates: start: 20160819, end: 20160824
  19. LANSOPRAZOLE. [Concomitant]
     Active Substance: LANSOPRAZOLE
     Dosage: 60 MG, QD
     Route: 042
     Dates: start: 20160818, end: 20160818
  20. LIDOCAINE. [Concomitant]
     Active Substance: LIDOCAINE
     Indication: POLYURIA
     Dosage: 10 ML, QD
     Route: 042
     Dates: start: 20160810, end: 20160810
  21. NITROGLYCERIN. [Concomitant]
     Active Substance: NITROGLYCERIN
     Indication: ANGINA PECTORIS
     Dosage: 20 MG, QD
     Route: 042
     Dates: start: 20160811, end: 20160811
  22. NITROPRUSSIDE [Concomitant]
     Active Substance: NITROPRUSSIDE
     Indication: HYPOTENSION
     Dosage: 50 MG, QD
     Route: 042
     Dates: start: 20160810, end: 20160810
  23. RECOMBINANT HUMAN ERYTHROPOIETIN [Concomitant]
     Active Substance: ERYTHROPOIETIN
     Dosage: 1 WU QD
     Route: 042
     Dates: start: 20160812, end: 20160812
  24. RECOMBINANT HUMAN ERYTHROPOIETIN [Concomitant]
     Active Substance: ERYTHROPOIETIN
     Dosage: 1 WU QD
     Route: 042
     Dates: start: 20160813, end: 20160813
  25. RECOMBINANT HUMAN ERYTHROPOIETIN [Concomitant]
     Active Substance: ERYTHROPOIETIN
     Dosage: 1 WU QD
     Route: 042
     Dates: start: 20160814, end: 20160814
  26. GLUTATHIONE [Concomitant]
     Active Substance: GLUTATHIONE
     Indication: PROPHYLAXIS
     Dosage: 100 MG, BID
     Route: 048
     Dates: start: 20160829, end: 20160901
  27. ZINC OXIDE. [Concomitant]
     Active Substance: ZINC OXIDE
     Indication: PROPHYLAXIS
     Dosage: 30000 MG, QD
     Route: 061
     Dates: start: 20160822, end: 20160822
  28. INDAPAMIDE. [Concomitant]
     Active Substance: INDAPAMIDE
     Indication: HYPOTENSION
     Dosage: 1.5 MG, QD
     Route: 048
     Dates: start: 20160830, end: 20160901
  29. FUROSEMIDE. [Concomitant]
     Active Substance: FUROSEMIDE
     Dosage: 100 MG, QD
     Route: 042
     Dates: start: 20160810, end: 20160810
  30. ALBUMIN [Concomitant]
     Active Substance: ALBUMIN HUMAN
     Indication: PRODUCT USED FOR UNKNOWN INDICATION
     Dosage: 100 ML, QD
     Route: 042
     Dates: start: 20160809, end: 20160809
  31. SODIUM BICARBONATE. [Concomitant]
     Active Substance: SODIUM BICARBONATE
     Dosage: 250 ML, QD
     Route: 042
     Dates: start: 20160822, end: 20160822
  32. LEVAMLODIPINE BESILATE [Concomitant]
     Active Substance: LEVAMLODIPINE BESYLATE
     Indication: HYPOTENSION
     Dosage: 5 MG, QD
     Route: 048
     Dates: start: 20160812, end: 20160901
  33. LIDOCAINE. [Concomitant]
     Active Substance: LIDOCAINE
     Dosage: 10 ML, QD
     Route: 042
     Dates: start: 20160812, end: 20160812
  34. POTASSIUM CHLORIDE. [Concomitant]
     Active Substance: POTASSIUM CHLORIDE
     Indication: PRODUCT USED FOR UNKNOWN INDICATION
     Dosage: 30 ML, BID
     Route: 042
     Dates: start: 20160815, end: 20160815
  35. RIBOFLAVIN SODIUM PHOSPHATE [Concomitant]
     Indication: PRODUCT USED FOR UNKNOWN INDICATION
     Dosage: 20 MG, QD
     Route: 042
     Dates: start: 20160810, end: 20160816
  36. VITAMIN K1 [Concomitant]
     Active Substance: PHYTONADIONE
     Indication: HAEMOSTASIS
     Dosage: 20 MG, QD
     Route: 042
     Dates: start: 20160810, end: 20160810
  37. FUROSEMIDE. [Concomitant]
     Active Substance: FUROSEMIDE
     Dosage: 80 MG, QD
     Route: 042
     Dates: start: 20160813, end: 20160813
  38. DEZOCINE [Concomitant]
     Active Substance: DEZOCINE
     Dosage: 30 MG, QD
     Route: 042
     Dates: start: 20160811, end: 20160811
  39. DEZOCINE [Concomitant]
     Active Substance: DEZOCINE
     Dosage: 30 MG, QD
     Route: 042
     Dates: start: 20160812, end: 20160812
  40. DOPAMINE [Concomitant]
     Active Substance: DOPAMINE\DOPAMINE HYDROCHLORIDE
     Dosage: 5 MG, QD
     Route: 042
     Dates: start: 20160810, end: 20160811
  41. MYFORTIC [Suspect]
     Active Substance: MYCOPHENOLATE SODIUM
     Dosage: 1440 MG, QD
     Route: 065
     Dates: start: 20160815, end: 20160817
  42. PREDNISONE. [Suspect]
     Active Substance: PREDNISONE
     Dosage: 30 MG, QD
     Route: 065
     Dates: start: 20160815, end: 20160815
  43. SODIUM BICARBONATE. [Concomitant]
     Active Substance: SODIUM BICARBONATE
     Dosage: 125 ML, QD
     Route: 042
     Dates: start: 20160812, end: 20160812
  44. SODIUM BICARBONATE. [Concomitant]
     Active Substance: SODIUM BICARBONATE
     Dosage: 250 ML, QD
     Route: 042
     Dates: start: 20160819, end: 20160819
  45. CEFOPERAZONE SODIUM AND TAZOBACTAM SODIUM [Concomitant]
     Active Substance: CEFOPERAZONE\TAZOBACTAM SODIUM
     Indication: INFECTION PROPHYLAXIS
     Dosage: 4000 MG, QD
     Route: 042
     Dates: start: 20160810, end: 20160810
  46. CEFOPERAZONE SODIUM AND TAZOBACTAM SODIUM [Concomitant]
     Active Substance: CEFOPERAZONE\TAZOBACTAM SODIUM
     Indication: INFLAMMATION
     Dosage: 4000 MG, BID
     Route: 042
     Dates: start: 20160811, end: 20160822
  47. LANSOPRAZOLE. [Concomitant]
     Active Substance: LANSOPRAZOLE
     Dosage: 60 MG, QD
     Route: 042
     Dates: start: 20160810, end: 20160810
  48. PENCICLOVIR. [Concomitant]
     Active Substance: PENCICLOVIR
     Indication: INFECTION PROPHYLAXIS
     Dosage: 500 MG, QD
     Route: 042
     Dates: start: 20160825, end: 20160827
  49. RECOMBINANT HUMAN INTERLEUKIN-11 [Concomitant]
     Dosage: 2 MG, QD
     Route: 042
     Dates: start: 20160816, end: 20160816
  50. SCOPOLAMINE [Concomitant]
     Active Substance: SCOPOLAMINE
     Indication: PRODUCT USED FOR UNKNOWN INDICATION
     Dosage: 0.3 MG, QD
     Route: 030
     Dates: start: 20160809, end: 20160809
  51. TIGECYCLINE. [Concomitant]
     Active Substance: TIGECYCLINE
     Dosage: 50 MG, BID
     Route: 042
     Dates: start: 20160811, end: 20160822
  52. HAEMOCOAGULASE [Concomitant]
     Indication: HAEMOSTASIS
     Dosage: 3 IU, QD
     Route: 042
     Dates: start: 20160810, end: 20160810
  53. FUROSEMIDE. [Concomitant]
     Active Substance: FUROSEMIDE
     Dosage: 40 MG, QD
     Route: 042
     Dates: start: 20160828, end: 20160828
  54. METHYLPREDNISOLONE. [Suspect]
     Active Substance: METHYLPREDNISOLONE
     Indication: PRODUCT USED FOR UNKNOWN INDICATION
     Dosage: 500 MG, QD
     Route: 065
     Dates: start: 20160809, end: 20160811
  55. TACROLIMUS. [Suspect]
     Active Substance: TACROLIMUS
     Dosage: 8 MG, QD
     Route: 065
     Dates: start: 20160816, end: 20160822
  56. CALCIUM GLUCONATE. [Concomitant]
     Active Substance: CALCIUM GLUCONATE
     Dosage: 30 ML, QD
     Route: 042
     Dates: start: 20160813, end: 20160813
  57. ALBUMIN [Concomitant]
     Active Substance: ALBUMIN HUMAN
     Dosage: 100 ML, BID
     Route: 042
     Dates: start: 20160811, end: 20160814
  58. ALBUMIN [Concomitant]
     Active Substance: ALBUMIN HUMAN
     Dosage: 100 ML, BID
     Route: 042
     Dates: start: 20160828, end: 20160829
  59. SODIUM BICARBONATE. [Concomitant]
     Active Substance: SODIUM BICARBONATE
     Dosage: 250 ML, QD
     Route: 042
     Dates: start: 20160811, end: 20160811
  60. SODIUM BICARBONATE. [Concomitant]
     Active Substance: SODIUM BICARBONATE
     Dosage: 125 ML, QD
     Route: 042
     Dates: start: 20160826, end: 20160826
  61. ASPIRIN. [Concomitant]
     Active Substance: ASPIRIN
     Indication: PROPHYLAXIS
     Dosage: 100 MG, QD
     Route: 048
     Dates: start: 20160814, end: 20160901
  62. MICAFUNGIN SODIUM [Concomitant]
     Active Substance: MICAFUNGIN SODIUM
     Dosage: 100 MG, QD
     Route: 061
     Dates: start: 20160810, end: 20160819
  63. OMEPRAZOLE SODIUM [Concomitant]
     Active Substance: OMEPRAZOLE SODIUM
     Indication: GASTRITIS PROPHYLAXIS
     Dosage: 10 MG, BID
     Route: 048
     Dates: start: 20160818, end: 20160901
  64. RECOMBINANT HUMAN ERYTHROPOIETIN [Concomitant]
     Active Substance: ERYTHROPOIETIN
     Dosage: 1 WU QD
     Route: 042
     Dates: start: 20160815, end: 20160815
  65. FUROSEMIDE. [Concomitant]
     Active Substance: FUROSEMIDE
     Dosage: 100 MG, QD
     Route: 042
     Dates: start: 20160811, end: 20160811
  66. MYFORTIC [Suspect]
     Active Substance: MYCOPHENOLATE SODIUM
     Dosage: 1800 MG, QD
     Route: 065
     Dates: start: 20160812, end: 20160814
  67. MYFORTIC [Suspect]
     Active Substance: MYCOPHENOLATE SODIUM
     Dosage: 1080 MG, QD
     Route: 065
     Dates: start: 20160818
  68. TACROLIMUS. [Suspect]
     Active Substance: TACROLIMUS
     Indication: PRODUCT USED FOR UNKNOWN INDICATION
     Dosage: 6 MG, QD
     Route: 065
     Dates: start: 20160812, end: 20160815
  69. POTASSIUM CHLORIDE. [Concomitant]
     Active Substance: POTASSIUM CHLORIDE
     Indication: PRODUCT USED FOR UNKNOWN INDICATION
     Dosage: 30 ML, QD
     Route: 048
     Dates: start: 20160814, end: 20160814
  70. ALBUMIN [Concomitant]
     Active Substance: ALBUMIN HUMAN
     Dosage: 50 ML, BID
     Route: 042
     Dates: start: 20160815, end: 20160816
  71. SODIUM BICARBONATE. [Concomitant]
     Active Substance: SODIUM BICARBONATE
     Indication: PRODUCT USED FOR UNKNOWN INDICATION
     Dosage: 250 ML, QD
     Route: 042
     Dates: start: 20160810, end: 20160810
  72. AMINOMETHYLBENZOIC ACID [Concomitant]
     Active Substance: AMINOMETHYLBENZOIC ACID
     Indication: HAEMOSTASIS
     Dosage: 600 MG, QD
     Route: 042
     Dates: start: 20160810, end: 20160810
  73. ISOSORBIDE MONONITRATE. [Concomitant]
     Active Substance: ISOSORBIDE MONONITRATE
     Indication: ANGINA PECTORIS
     Dosage: 50 MG, BID
     Route: 048
     Dates: start: 20160812, end: 20160901
  74. LANSOPRAZOLE. [Concomitant]
     Active Substance: LANSOPRAZOLE
     Dosage: 60 MG, BID
     Route: 042
     Dates: start: 20160811, end: 20160816
  75. LIDOCAINE. [Concomitant]
     Active Substance: LIDOCAINE
     Dosage: 10 ML, QD
     Route: 042
     Dates: start: 20160811, end: 20160811
  76. MICAFUNGIN SODIUM [Concomitant]
     Active Substance: MICAFUNGIN SODIUM
     Dosage: 50 MG, QD
     Route: 061
     Dates: start: 20160820, end: 20160820
  77. MOXIFLOXACIN HYDROCHLORIDE. [Concomitant]
     Active Substance: MOXIFLOXACIN HYDROCHLORIDE
     Indication: INFECTION PROPHYLAXIS
     Dosage: 400 MG, QD
     Route: 042
     Dates: start: 20160809, end: 20160809
  78. RECOMBINANT HUMAN INTERLEUKIN-11 [Concomitant]
     Dosage: 2 MG, QD
     Route: 042
     Dates: start: 20160815, end: 20160815
  79. RIBOFLAVIN SODIUM PHOSPHATE [Concomitant]
     Indication: PROPHYLAXIS
     Dosage: 20 MG, QD
     Route: 042
     Dates: start: 20160819, end: 20160824
  80. SODIUM BICARBONATE. [Concomitant]
     Active Substance: SODIUM BICARBONATE
     Indication: PRODUCT USED FOR UNKNOWN INDICATION
     Dosage: 1500 MG, TID
     Dates: start: 20160825, end: 20160901
  81. TIGECYCLINE. [Concomitant]
     Active Substance: TIGECYCLINE
     Indication: INFECTION PROPHYLAXIS
     Dosage: 50 MG, BID
     Route: 042
     Dates: start: 20160810, end: 20160810
  82. FUROSEMIDE. [Concomitant]
     Active Substance: FUROSEMIDE
     Dosage: 60 MG, BID
     Route: 042
     Dates: start: 20160810, end: 20160810
  83. DOPAMINE [Concomitant]
     Active Substance: DOPAMINE\DOPAMINE HYDROCHLORIDE
     Dosage: 5 MG, QD
     Route: 042
     Dates: start: 20160811, end: 20160811
  84. CALCIUM GLUCONATE. [Concomitant]
     Active Substance: CALCIUM GLUCONATE
     Dosage: 30 ML, QD
     Route: 061
     Dates: start: 20160822, end: 20160822
  85. COENZYME [Concomitant]
     Active Substance: UBIDECARENONE
     Indication: PRODUCT USED FOR UNKNOWN INDICATION
     Dosage: 15 MG, QD
     Route: 042
     Dates: start: 20160810, end: 20160816
  86. LANSOPRAZOLE. [Concomitant]
     Active Substance: LANSOPRAZOLE
     Indication: GASTRITIS PROPHYLAXIS
     Dosage: 60 MG, QD
     Route: 042
     Dates: start: 20160809, end: 20160809
  87. LANSOPRAZOLE. [Concomitant]
     Active Substance: LANSOPRAZOLE
     Dosage: 60 MG, QD
     Route: 042
     Dates: start: 20160817, end: 20160817
  88. MICAFUNGIN SODIUM [Concomitant]
     Active Substance: MICAFUNGIN SODIUM
     Indication: INFECTION PROPHYLAXIS
     Dosage: 50 MG, QD
     Route: 061
     Dates: start: 20160810, end: 20160810
  89. PHENOBARBITAL. [Concomitant]
     Active Substance: PHENOBARBITAL
     Indication: VOMITING
     Dosage: 100 MG, QD
     Route: 030
     Dates: start: 20160809, end: 20160809
  90. PHENTOLAMINE MESYLATE. [Concomitant]
     Active Substance: PHENTOLAMINE MESYLATE
     Dosage: 5 MG, QD
     Route: 042
     Dates: start: 20160810, end: 20160811
  91. RECOMBINANT HUMAN ERYTHROPOIETIN [Concomitant]
     Active Substance: ERYTHROPOIETIN
     Indication: RED BLOOD CELL COUNT DECREASED
     Dosage: 1 WU QD
     Route: 042
     Dates: start: 20160811, end: 20160811
  92. RECOMBINANT HUMAN INTERLEUKIN-11 [Concomitant]
     Indication: PLATELET COUNT DECREASED
     Dosage: 2 MG, QD
     Route: 042
     Dates: start: 20160814, end: 20160814
  93. FUROSEMIDE. [Concomitant]
     Active Substance: FUROSEMIDE
     Indication: POLYURIA
     Dosage: 100 MG, QD
     Route: 042
     Dates: start: 20160809, end: 20160809
  94. FUROSEMIDE. [Concomitant]
     Active Substance: FUROSEMIDE
     Dosage: 100 MG, QD
     Route: 042
     Dates: start: 20160812, end: 20160812
  95. DEZOCINE [Concomitant]
     Active Substance: DEZOCINE
     Indication: PAIN
     Dosage: 30 MG, QD
     Route: 042
     Dates: start: 20160810, end: 20160810
  96. DOPAMINE [Concomitant]
     Active Substance: DOPAMINE\DOPAMINE HYDROCHLORIDE
     Indication: POLYURIA
     Dosage: 5 MG, QD
     Route: 042
     Dates: start: 20160810, end: 20160810
  97. DOPAMINE [Concomitant]
     Active Substance: DOPAMINE\DOPAMINE HYDROCHLORIDE
     Dosage: 5 MG, QD
     Route: 042
     Dates: start: 20160812, end: 20160812
  98. BASILIXIMAB [Suspect]
     Active Substance: BASILIXIMAB
     Dosage: 20 MG, QD
     Route: 065
     Dates: start: 20160813, end: 20160813
  99. PREDNISONE. [Suspect]
     Active Substance: PREDNISONE
     Dosage: 40 MG, QD
     Route: 065
     Dates: start: 20160814, end: 20160814
  100. PREDNISONE. [Suspect]
     Active Substance: PREDNISONE
     Dosage: 20 MG, QD
     Route: 065
     Dates: start: 20160816, end: 20160816
  101. PREDNISONE. [Suspect]
     Active Substance: PREDNISONE
     Dosage: 10 MG, QD
     Route: 065
     Dates: start: 20160817, end: 20160817
  102. TACROLIMUS. [Suspect]
     Active Substance: TACROLIMUS
     Dosage: 7 MG, QD
     Route: 065
     Dates: start: 20160830, end: 20160901
  103. CALCIUM GLUCONATE. [Concomitant]
     Active Substance: CALCIUM GLUCONATE
     Indication: PRODUCT USED FOR UNKNOWN INDICATION
     Dosage: 30 ML, QD
     Route: 042
     Dates: start: 20160810, end: 20160810
  104. SODIUM BICARBONATE. [Concomitant]
     Active Substance: SODIUM BICARBONATE
     Dosage: 250 ML, QD
     Route: 042
     Dates: start: 20160825, end: 20160825
  105. ALPROSTADIL. [Concomitant]
     Active Substance: ALPROSTADIL
     Indication: THROMBOSIS PROPHYLAXIS
     Dosage: 20 UG, QD
     Route: 042
     Dates: start: 20160810, end: 20160826
  106. AMBROXOL HYDROCHLORIDE [Concomitant]
     Active Substance: AMBROXOL HYDROCHLORIDE
     Indication: PRODUCTIVE COUGH
     Dosage: 210 MG, QD
     Route: 042
     Dates: start: 20160810, end: 20160816
  107. ATORVASTATIN CALCIUM. [Concomitant]
     Active Substance: ATORVASTATIN CALCIUM
     Indication: LIPIDS INCREASED
     Dosage: 20 MG, QD
     Route: 048
     Dates: start: 20160814, end: 20160901
  108. LIDOCAINE. [Concomitant]
     Active Substance: LIDOCAINE
     Dosage: 10 ML, QD
     Route: 042
     Dates: start: 20160810, end: 20160811
  109. BETALOC [Concomitant]
     Active Substance: METOPROLOL TARTRATE
     Indication: HYPOTENSION
     Dosage: 47.5 MG, BID
     Route: 048
     Dates: start: 20160813, end: 20160901
  110. PHENTOLAMINE MESYLATE. [Concomitant]
     Active Substance: PHENTOLAMINE MESYLATE
     Dosage: 5 MG, QD
     Route: 042
     Dates: start: 20160811, end: 20160811
  111. POTASSIUM CHLORIDE. [Concomitant]
     Active Substance: POTASSIUM CHLORIDE
     Indication: PRODUCT USED FOR UNKNOWN INDICATION
     Dosage: 30 ML, QD
     Route: 042
     Dates: start: 20160814, end: 20160814
  112. POTASSIUM CHLORIDE. [Concomitant]
     Active Substance: POTASSIUM CHLORIDE
     Indication: PRODUCT USED FOR UNKNOWN INDICATION
     Dosage: 2000 MG, TID
     Route: 048
     Dates: start: 20160816, end: 20160816
  113. FUROSEMIDE. [Concomitant]
     Active Substance: FUROSEMIDE
     Dosage: 20 MG, QD
     Route: 042
     Dates: start: 20160822, end: 20160822
  114. FUROSEMIDE. [Concomitant]
     Active Substance: FUROSEMIDE
     Dosage: 20 MG, QD
     Route: 042
     Dates: start: 20160825, end: 20160825
  115. ESTAZOLAM. [Concomitant]
     Active Substance: ESTAZOLAM
     Indication: SLEEP DISORDER
     Dosage: 2 MG, QD
     Route: 048
     Dates: start: 20160813, end: 20160813
  116. DOPAMINE [Concomitant]
     Active Substance: DOPAMINE\DOPAMINE HYDROCHLORIDE
     Dosage: 5 MG, QD
     Route: 042
     Dates: start: 20160813, end: 20160813

REACTIONS (7)
  - Lymphocyte count decreased [Unknown]
  - Aspartate aminotransferase increased [Unknown]
  - Atrial fibrillation [Unknown]
  - Alanine aminotransferase increased [Unknown]
  - Blood glucose increased [Unknown]
  - Platelet count decreased [Unknown]
  - Anaemia [Recovering/Resolving]

NARRATIVE: CASE EVENT DATE: 20160812
